FAERS Safety Report 5020994-3 (Version None)
Quarter: 2006Q2

REPORT INFORMATION
  Report Type: 
  Country: None (occurrence: None)
  Receive Date: 20060602
  Receipt Date: 20060520
  Transmission Date: 20061013
  Serious: Yes (Other)
  Sender: FDA-Public Use
  Company Number: CHPA2006US05032

PATIENT
  Age: 32 Year
  Sex: Female

DRUGS (2)
  1. GAS-X MAXIMUM STRENGTH SOFTGELS (NCH)(SIMETHICONE)SOLF GELATIN CAPSULE [Suspect]
     Indication: ABDOMINAL DISTENSION
     Dosage: 166MG, QD; ORAL
     Route: 048
     Dates: start: 20060518
  2. DRUG THERAPY NOS (DRUG THERAPY NOS) [Concomitant]

REACTIONS (1)
  - HAEMATOCHEZIA [None]
